FAERS Safety Report 18092093 (Version 1)
Quarter: 2020Q3

REPORT INFORMATION
  Report Type: Spontaneous
  Country: US (occurrence: US)
  Receive Date: 20200730
  Receipt Date: 20200730
  Transmission Date: 20201103
  Serious: Yes (Hospitalization)
  Sender: FDA-Public Use
  Company Number: None

PATIENT
  Age: 80 Year
  Sex: Male
  Weight: 110 kg

DRUGS (1)
  1. METFORMIN (METFORMIN HCL 1000MG TAB, SA) [Suspect]
     Active Substance: METFORMIN HYDROCHLORIDE
     Indication: DIABETES MELLITUS
     Route: 048
     Dates: start: 20160208, end: 20200303

REACTIONS (4)
  - Dizziness [None]
  - Blood urea increased [None]
  - Blood creatinine increased [None]
  - Diarrhoea [None]

NARRATIVE: CASE EVENT DATE: 20200226
